FAERS Safety Report 6581104-4 (Version None)
Quarter: 2010Q1

REPORT INFORMATION
  Report Type: 
  Country: None (occurrence: None)
  Receive Date: 20100215
  Receipt Date: 20100204
  Transmission Date: 20100710
  Serious: Yes (Other)
  Sender: FDA-Public Use
  Company Number: PHHY2009BR46104

PATIENT
  Sex: Female

DRUGS (9)
  1. DIOVAN [Suspect]
     Dosage: 160 MG TWICE A DAY
  2. LEVOTHYROXINE SODIUM [Concomitant]
     Indication: THYROID NEOPLASM
     Dosage: 50 MCG, 1 TABLET AFTER WAKING UP
     Route: 048
  3. SIMVASTATIN [Concomitant]
     Dosage: 20 MG
  4. SIMVASTATIN [Concomitant]
     Dosage: 40 MG
  5. GLIFAGE XR [Concomitant]
     Dosage: 2 TABLETS DAILY
  6. NATRILIX [Concomitant]
     Indication: BLOOD PRESSURE
     Dosage: 1 TABLET DAILY
     Route: 048
  7. COMPOUND ARTICHOKE [Concomitant]
     Indication: LIVER DISORDER
     Dosage: UNK
  8. XANTINON [Concomitant]
     Indication: LIVER DISORDER
     Dosage: UNK
  9. ACETYLSALICYLIC ACID [Concomitant]
     Indication: INFARCTION
     Dosage: 2 TABLETS DAILY
     Route: 048

REACTIONS (8)
  - BLOOD GLUCOSE INCREASED [None]
  - BLOOD PRESSURE INCREASED [None]
  - CATARACT [None]
  - CATARACT OPERATION [None]
  - DYSPEPSIA [None]
  - HEADACHE [None]
  - INSOMNIA [None]
  - LOW DENSITY LIPOPROTEIN INCREASED [None]
